FAERS Safety Report 24627586 (Version 1)
Quarter: 2024Q4

REPORT INFORMATION
  Report Type: Spontaneous
  Country: GB (occurrence: GB)
  Receive Date: 20241116
  Receipt Date: 20241116
  Transmission Date: 20250115
  Serious: Yes (Other)
  Sender: AUROBINDO
  Company Number: GB-MHRA-33793645

PATIENT
  Sex: Female

DRUGS (1)
  1. BISOPROLOL [Suspect]
     Active Substance: BISOPROLOL
     Indication: Heart rate increased
     Dosage: 2.5 MILLIGRAM
     Route: 065

REACTIONS (6)
  - Chest discomfort [Unknown]
  - Heart rate decreased [Unknown]
  - Paraesthesia [Unknown]
  - Skin discolouration [Unknown]
  - Agitation [Unknown]
  - Head discomfort [Unknown]
